FAERS Safety Report 6140731-9 (Version None)
Quarter: 2009Q2

REPORT INFORMATION
  Report Type: 
  Country: None (occurrence: None)
  Receive Date: 20090402
  Receipt Date: 20090330
  Transmission Date: 20091009
  Serious: Yes (Death)
  Sender: FDA-Public Use
  Company Number: CA-ROXANE LABORATORIES, INC.-2009-RO-00305RO

PATIENT
  Age: 2 Week

DRUGS (1)
  1. MORPHINE [Suspect]
     Indication: WITHDRAWAL OF LIFE SUPPORT
     Route: 042

REACTIONS (1)
  - DEATH [None]
